FAERS Safety Report 12415358 (Version 2)
Quarter: 2016Q2

REPORT INFORMATION
  Report Type: Spontaneous
  Country: US (occurrence: US)
  Receive Date: 20160530
  Receipt Date: 20160622
  Transmission Date: 20160815
  Serious: No
  Sender: FDA-Public Use
  Company Number: US-PFIZER INC-2016266767

PATIENT
  Age: 56 Year
  Sex: Female

DRUGS (9)
  1. REVATIO [Suspect]
     Active Substance: SILDENAFIL CITRATE
     Indication: HEART VALVE INCOMPETENCE
     Dosage: 20 MG, 3X/DAY
     Dates: start: 2010
  2. REVATIO [Suspect]
     Active Substance: SILDENAFIL CITRATE
     Indication: PULMONARY HYPERTENSION
     Dosage: 20 MG, 3X/DAY
     Dates: start: 201605
  3. REVATIO [Suspect]
     Active Substance: SILDENAFIL CITRATE
     Indication: CARDIAC FAILURE CONGESTIVE
     Dosage: ONE TABLET A DAY
     Dates: start: 201604, end: 201605
  4. REVATIO [Suspect]
     Active Substance: SILDENAFIL CITRATE
     Dosage: 20 MG, 3X/DAY (EVERY 8 HOURS)
     Route: 048
     Dates: start: 2011
  5. CARVEDILOL. [Concomitant]
     Active Substance: CARVEDILOL
     Indication: CARDIAC DISORDER
     Dosage: STARTED OUT AT A LOWER DOSE
     Dates: start: 2010
  6. LASIX [Concomitant]
     Active Substance: FUROSEMIDE
     Indication: CARDIAC FAILURE CONGESTIVE
     Dosage: 20 MG, ONCE A DAY
     Dates: start: 2010
  7. HYDROXYCHLOROQUINE [Concomitant]
     Active Substance: HYDROXYCHLOROQUINE
     Indication: SYSTEMIC LUPUS ERYTHEMATOSUS
     Dosage: 200 MG, 2X/DAY
     Dates: start: 2001
  8. CARVEDILOL. [Concomitant]
     Active Substance: CARVEDILOL
     Dosage: 12.5 MG, UNK
  9. LOSARTAN. [Concomitant]
     Active Substance: LOSARTAN
     Dosage: 25 MG, UNK
     Dates: start: 2010

REACTIONS (3)
  - Intentional product use issue [Recovered/Resolved]
  - Muscle spasms [Recovering/Resolving]
  - Fatigue [Recovering/Resolving]

NARRATIVE: CASE EVENT DATE: 201604
